FAERS Safety Report 8208238 (Version 2)
Quarter: 2012Q4

REPORT INFORMATION
  Report Type: 
  Country: CA (occurrence: CA)
  Receive Date: 20111028
  Receipt Date: 20121217
  Transmission Date: 20130627
  Serious: Yes (Death, Hospitalization)
  Sender: FDA-Public Use
  Company Number: CA-GLAXOSMITHKLINE-A0884618A

PATIENT
  Sex: Female

DRUGS (3)
  1. TYKERB [Suspect]
     Indication: BREAST CANCER METASTATIC
     Dosage: 1250MG Per day
     Route: 048
     Dates: start: 20100812, end: 20111017
  2. XELODA [Suspect]
     Indication: PRODUCT USED FOR UNKNOWN INDICATION
     Route: 065
  3. LEVOFLOXACIN [Concomitant]
     Route: 065

REACTIONS (8)
  - Diarrhoea [Unknown]
  - White blood cell count decreased [Unknown]
  - Adverse drug reaction [Unknown]
  - Localised infection [Unknown]
  - Pyrexia [Unknown]
  - Malignant neoplasm progression [Unknown]
  - Device related infection [Not Recovered/Not Resolved]
  - Death [Fatal]
